FAERS Safety Report 5464488-X (Version None)
Quarter: 2007Q3

REPORT INFORMATION
  Report Type: 
  Country: None (occurrence: None)
  Receive Date: 20070921
  Receipt Date: 20070911
  Transmission Date: 20080115
  Serious: Yes (Other)
  Sender: FDA-Public Use
  Company Number: NL-ABBOTT-07P-114-0416982-00

PATIENT
  Sex: Male
  Weight: 63 kg

DRUGS (3)
  1. HUMIRA [Suspect]
     Indication: ANKYLOSING SPONDYLITIS
     Route: 058
     Dates: start: 20070213, end: 20070508
  2. INFLIXIMAB [Suspect]
     Indication: ANKYLOSING SPONDYLITIS
     Dosage: INFUSION POWDER VIAL 100MG
     Route: 042
     Dates: start: 20051213, end: 20061024
  3. OSCOREL CAPSULE MGA [Concomitant]
     Indication: DRUG USE FOR UNKNOWN INDICATION

REACTIONS (3)
  - METASTASES TO LYMPH NODES [None]
  - METASTASES TO RETROPERITONEUM [None]
  - TESTICULAR SEMINOMA (PURE) [None]
